FAERS Safety Report 11009749 (Version 4)
Quarter: 2015Q3

REPORT INFORMATION
  Report Type: Spontaneous
  Country: US (occurrence: US)
  Receive Date: 20150410
  Receipt Date: 20150908
  Transmission Date: 20151125
  Serious: Yes (Hospitalization)
  Sender: FDA-Public Use
  Company Number: US-ASTRAZENECA-2010BM04795

PATIENT
  Age: 21641 Day
  Sex: Female
  Weight: 161 kg

DRUGS (51)
  1. BYETTA [Suspect]
     Active Substance: EXENATIDE
     Indication: TYPE 2 DIABETES MELLITUS
     Route: 058
     Dates: start: 200910, end: 20091228
  2. GABAPENTIN. [Concomitant]
     Active Substance: GABAPENTIN
     Indication: NEUROPATHY PERIPHERAL
     Route: 048
     Dates: start: 200910
  3. ZYRTEC [Concomitant]
     Active Substance: CETIRIZINE HYDROCHLORIDE
     Route: 048
     Dates: end: 20100323
  4. RHINOCORT [Concomitant]
     Active Substance: BUDESONIDE
     Dosage: UNK
     Route: 045
     Dates: end: 20010323
  5. VITAMIN C [Concomitant]
     Active Substance: ASCORBIC ACID
     Route: 048
     Dates: end: 20081121
  6. PERCOCET [Concomitant]
     Active Substance: ACETAMINOPHEN\OXYCODONE HYDROCHLORIDE
     Indication: PAIN
  7. LIDODERM [Concomitant]
     Active Substance: LIDOCAINE
     Indication: PAIN
  8. ZOLPIDERM [Concomitant]
     Indication: SLEEP DISORDER
     Route: 048
  9. ZOVIRAX [Concomitant]
     Active Substance: ACYCLOVIR
     Indication: ORAL HERPES
     Dosage: 5 AS REQUIRED
  10. INVOKANA [Concomitant]
     Active Substance: CANAGLIFLOZIN
     Indication: DIABETES MELLITUS
     Route: 048
  11. GABAPENTIN. [Concomitant]
     Active Substance: GABAPENTIN
     Indication: NEUROPATHY PERIPHERAL
     Route: 048
  12. VITAMIN B [Concomitant]
     Active Substance: VITAMIN B
     Indication: PROPHYLAXIS
     Route: 048
  13. MAGNESIUM [Concomitant]
     Active Substance: MAGNESIUM
     Route: 048
  14. VITAMIN B6 [Concomitant]
     Active Substance: PYRIDOXINE HYDROCHLORIDE
     Route: 048
     Dates: end: 20081121
  15. LIDOCAINE. [Concomitant]
     Active Substance: LIDOCAINE
     Indication: NERVE INJURY
     Dosage: 5
  16. TRAZODONE [Concomitant]
     Active Substance: TRAZODONE HYDROCHLORIDE
     Indication: SLEEP DISORDER
  17. METFORMIN [Concomitant]
     Active Substance: METFORMIN HYDROCHLORIDE
     Indication: DIABETES MELLITUS
     Route: 048
  18. BYETTA [Suspect]
     Active Substance: EXENATIDE
     Indication: TYPE 2 DIABETES MELLITUS
     Route: 058
     Dates: start: 201003
  19. GABAPENTIN. [Concomitant]
     Active Substance: GABAPENTIN
     Indication: HERPES ZOSTER
     Route: 048
     Dates: start: 200910
  20. IBUPROFEN. [Concomitant]
     Active Substance: IBUPROFEN
     Indication: PAIN
     Dosage: UNK
     Route: 048
  21. PRAVASTATIN [Concomitant]
     Active Substance: PRAVASTATIN\PRAVASTATIN SODIUM
     Indication: BLOOD CHOLESTEROL ABNORMAL
     Route: 048
  22. NYSTATIN. [Concomitant]
     Active Substance: NYSTATIN
     Indication: FUNGAL INFECTION
  23. FLUCONAZOLE. [Concomitant]
     Active Substance: FLUCONAZOLE
     Indication: FUNGAL INFECTION
     Route: 048
  24. BYETTA [Suspect]
     Active Substance: EXENATIDE
     Indication: TYPE 2 DIABETES MELLITUS
     Route: 058
     Dates: start: 201002, end: 201003
  25. LISINOPRIL. [Suspect]
     Active Substance: LISINOPRIL
     Indication: HYPERTENSION
     Route: 048
  26. METFORMIN HCL [Concomitant]
     Active Substance: METFORMIN HYDROCHLORIDE
     Indication: TYPE 2 DIABETES MELLITUS
     Route: 048
  27. OMEPRAZOLE. [Concomitant]
     Active Substance: OMEPRAZOLE
     Route: 048
     Dates: start: 20070105
  28. HYDROCODONE [Concomitant]
     Active Substance: HYDROCODONE
     Indication: PAIN
  29. BYETTA [Suspect]
     Active Substance: EXENATIDE
     Indication: TYPE 2 DIABETES MELLITUS
     Route: 058
     Dates: start: 201002, end: 201003
  30. LISINOPRIL. [Suspect]
     Active Substance: LISINOPRIL
     Indication: HYPERTENSION
     Route: 048
  31. ASA [Concomitant]
     Active Substance: ASPIRIN
     Indication: PROPHYLAXIS
     Route: 048
     Dates: start: 20051026
  32. FOLIC ACID. [Concomitant]
     Active Substance: FOLIC ACID
     Indication: PROPHYLAXIS
     Route: 048
     Dates: start: 20051026
  33. MULTIVITAMIN [Concomitant]
     Active Substance: VITAMINS
     Route: 048
     Dates: start: 20051026
  34. VITAMIN E /001105/ [Concomitant]
     Route: 048
     Dates: start: 20051026
  35. BYDUREON [Suspect]
     Active Substance: EXENATIDE
     Indication: TYPE 2 DIABETES MELLITUS
     Route: 058
  36. NEXIUM [Suspect]
     Active Substance: ESOMEPRAZOLE MAGNESIUM
     Indication: DYSPEPSIA
     Route: 048
  37. GABAPENTIN. [Concomitant]
     Active Substance: GABAPENTIN
     Indication: HERPES ZOSTER
     Route: 048
  38. FLAXSEED [Concomitant]
     Active Substance: FLAX SEED
     Route: 048
  39. CITRACAL + D [Concomitant]
     Active Substance: CALCIUM CITRATE\VITAMIN D
     Route: 048
     Dates: start: 20051026
  40. FENOFIBRATE. [Concomitant]
     Active Substance: FENOFIBRATE
     Indication: BLOOD CHOLESTEROL ABNORMAL
  41. ACTOS /SCH/ [Concomitant]
     Dosage: UNK
     Dates: start: 200708
  42. DULOXETINE. [Concomitant]
     Active Substance: DULOXETINE
     Indication: NEURALGIA
     Route: 048
  43. BYETTA [Suspect]
     Active Substance: EXENATIDE
     Indication: TYPE 2 DIABETES MELLITUS
     Route: 058
     Dates: start: 200910, end: 20091228
  44. BYETTA [Suspect]
     Active Substance: EXENATIDE
     Indication: TYPE 2 DIABETES MELLITUS
     Route: 058
     Dates: start: 200909, end: 200910
  45. BYETTA [Suspect]
     Active Substance: EXENATIDE
     Indication: TYPE 2 DIABETES MELLITUS
     Route: 065
  46. NEXIUM [Suspect]
     Active Substance: ESOMEPRAZOLE MAGNESIUM
     Indication: GASTROOESOPHAGEAL REFLUX DISEASE
     Route: 048
  47. METFORMIN HCL [Concomitant]
     Active Substance: METFORMIN HYDROCHLORIDE
     Indication: TYPE 2 DIABETES MELLITUS
     Route: 048
     Dates: start: 20060407
  48. CYMBALTA [Concomitant]
     Active Substance: DULOXETINE HYDROCHLORIDE
     Indication: PAIN
     Route: 048
  49. PRAVACHOL [Concomitant]
     Active Substance: PRAVASTATIN SODIUM
     Route: 048
  50. VITAMIN B12 [Concomitant]
     Active Substance: CYANOCOBALAMIN
     Route: 048
  51. FENTANYL. [Concomitant]
     Active Substance: FENTANYL
     Indication: PAIN

REACTIONS (24)
  - Infection [Recovered/Resolved]
  - Blister [Recovered/Resolved]
  - Dyspepsia [Recovered/Resolved]
  - Drug hypersensitivity [Unknown]
  - Malaise [Recovered/Resolved]
  - Product quality issue [Unknown]
  - Rash [Recovered/Resolved]
  - Pain [Not Recovered/Not Resolved]
  - Blood glucose increased [Recovering/Resolving]
  - Weight decreased [Unknown]
  - Abdominal pain upper [Recovered/Resolved]
  - Dyspepsia [Unknown]
  - Nausea [Unknown]
  - Herpes zoster [Recovered/Resolved]
  - External ear pain [Not Recovered/Not Resolved]
  - Eye pain [Not Recovered/Not Resolved]
  - Appendicitis perforated [Recovered/Resolved]
  - Nasopharyngitis [Unknown]
  - Diarrhoea [Unknown]
  - Food poisoning [Recovered/Resolved]
  - Injection site pain [Recovered/Resolved]
  - Injection site mass [Not Recovered/Not Resolved]
  - Tension headache [Unknown]
  - Hypophagia [Unknown]

NARRATIVE: CASE EVENT DATE: 200912
